FAERS Safety Report 6138650-7 (Version None)
Quarter: 2009Q1

REPORT INFORMATION
  Report Type: 
  Country: None (occurrence: None)
  Receive Date: 20090326
  Receipt Date: 20090310
  Transmission Date: 20090719
  Serious: Yes (Other)
  Sender: FDA-Public Use
  Company Number: CHNY2009JP01306

PATIENT
  Age: 28 Year
  Sex: Male

DRUGS (1)
  1. NICOTINE [Suspect]
     Indication: SMOKING CESSATION THERAPY
     Dosage: 14 MG, QD, TRANSDERMAL
     Route: 062
     Dates: start: 20090302, end: 20090304

REACTIONS (5)
  - DIZZINESS [None]
  - DYSARTHRIA [None]
  - NAUSEA [None]
  - SOMNOLENCE [None]
  - VOMITING [None]
